FAERS Safety Report 16287019 (Version 1)
Quarter: 2019Q2

REPORT INFORMATION
  Report Type: Spontaneous
  Country: US (occurrence: US)
  Receive Date: 20190508
  Receipt Date: 20190508
  Transmission Date: 20190711
  Serious: Yes (Other)
  Sender: FDA-Public Use
  Company Number: US-GILEAD-2019-0405064

PATIENT
  Age: 49 Year
  Sex: Male

DRUGS (25)
  1. ATENOLOL. [Concomitant]
     Active Substance: ATENOLOL
  2. FEXOFENADINE [Concomitant]
     Active Substance: FEXOFENADINE\FEXOFENADINE HYDROCHLORIDE
  3. TRUVADA [Suspect]
     Active Substance: EMTRICITABINE\TENOFOVIR DISOPROXIL FUMARATE
     Indication: HIV INFECTION
     Route: 065
  4. PATIROMER [Concomitant]
     Active Substance: PATIROMER
  5. ASPIRINE [Concomitant]
     Active Substance: ASPIRIN
  6. INSULIN [Concomitant]
     Active Substance: INSULIN NOS
  7. GEMFIBROZIL. [Concomitant]
     Active Substance: GEMFIBROZIL
  8. GABAPENTIN. [Concomitant]
     Active Substance: GABAPENTIN
  9. VENLAFAXINE [Concomitant]
     Active Substance: VENLAFAXINE HYDROCHLORIDE
  10. DEXTROAMPHETAMINE [DEXAMFETAMINE] [Concomitant]
     Active Substance: DEXTROAMPHETAMINE
  11. ENFUVIRTIDE. [Concomitant]
     Active Substance: ENFUVIRTIDE
  12. CHOLECALCIFEROL [Concomitant]
     Active Substance: CHOLECALCIFEROL
  13. PITAVASTATIN. [Concomitant]
     Active Substance: PITAVASTATIN CALCIUM
  14. BECLOMETHASONE DIPROPIONATE MONOHYDRATE [Concomitant]
     Active Substance: BECLOMETHASONE DIPROPIONATE MONOHYDRATE
  15. OMEPRAZOLE. [Concomitant]
     Active Substance: OMEPRAZOLE
  16. TAMSULOSIN [TAMSULOSIN HYDROCHLORIDE] [Concomitant]
  17. LISINOPRIL. [Concomitant]
     Active Substance: LISINOPRIL
  18. AMLODIPINE [Concomitant]
     Active Substance: AMLODIPINE BESYLATE
  19. ASCORBIC ACID. [Concomitant]
     Active Substance: ASCORBIC ACID
  20. FINASTERIDE ARROW [Concomitant]
  21. OXYBUTYNIN. [Concomitant]
     Active Substance: OXYBUTYNIN CHLORIDE
  22. MIRTAZAPINE. [Concomitant]
     Active Substance: MIRTAZAPINE
  23. SODIUM BICARBONATE. [Concomitant]
     Active Substance: SODIUM BICARBONATE
  24. FISH OIL [Concomitant]
     Active Substance: FISH OIL
  25. ALBUTEROL [SALBUTAMOL] [Concomitant]
     Active Substance: ALBUTEROL

REACTIONS (2)
  - Focal segmental glomerulosclerosis [Unknown]
  - Mitochondrial toxicity [Unknown]
